FAERS Safety Report 10973422 (Version 1)
Quarter: 2015Q2

REPORT INFORMATION
  Report Type: Spontaneous
  Country: US (occurrence: US)
  Receive Date: 20150401
  Receipt Date: 20150401
  Transmission Date: 20150821
  Serious: Yes (Death, Hospitalization)
  Sender: FDA-Public Use
  Company Number: US-ASTRAZENECA-2013SE64152

PATIENT
  Age: 21165 Day
  Sex: Female

DRUGS (23)
  1. BUPROPION [Concomitant]
     Active Substance: BUPROPION
  2. TRAVATAN [Concomitant]
     Active Substance: TRAVOPROST
     Route: 047
  3. METHADONE [Concomitant]
     Active Substance: METHADONE HYDROCHLORIDE
     Route: 048
  4. MULTIVITAMIN [Concomitant]
     Active Substance: VITAMINS
  5. LEVEMIR [Concomitant]
     Active Substance: INSULIN DETEMIR
     Dosage: 1DF: 15 UNITS AT NIGHT
  6. LOVASTATIN. [Concomitant]
     Active Substance: LOVASTATIN
  7. SERTRALINE [Concomitant]
     Active Substance: SERTRALINE HYDROCHLORIDE
  8. DILAUDID [Concomitant]
     Active Substance: HYDROMORPHONE HYDROCHLORIDE
     Dosage: 0.5 MG, UNK
  9. ZOLOFT [Concomitant]
     Active Substance: SERTRALINE HYDROCHLORIDE
     Dosage: 100 MG 2 TAB QD
     Route: 065
  10. BYETTA [Suspect]
     Active Substance: EXENATIDE
     Indication: TYPE 2 DIABETES MELLITUS
     Dosage: UNK
     Route: 065
     Dates: start: 20070307, end: 20091122
  11. BYETTA [Suspect]
     Active Substance: EXENATIDE
     Indication: TYPE 2 DIABETES MELLITUS
     Dosage: 10 MCG/0.04ML 10 MCG BID
     Route: 065
     Dates: start: 20100113
  12. FISH OIL [Concomitant]
     Active Substance: FISH OIL
     Dosage: UNK UNK, BID
  13. METFORMIN [Concomitant]
     Active Substance: METFORMIN HYDROCHLORIDE
  14. RAMIPRIL. [Concomitant]
     Active Substance: RAMIPRIL
  15. LEVOTHYROXINE [Concomitant]
     Active Substance: LEVOTHYROXINE
  16. TRICOR [Concomitant]
     Active Substance: FENOFIBRATE
  17. CHOLESTYRAMINE. [Concomitant]
     Active Substance: CHOLESTYRAMINE
     Dosage: UNK UNK, QD
  18. NOVOLOG [Concomitant]
     Active Substance: INSULIN ASPART
  19. INSULIN [Concomitant]
     Active Substance: INSULIN NOS
  20. NAPROXEN. [Concomitant]
     Active Substance: NAPROXEN
  21. GLYBURIDE. [Concomitant]
     Active Substance: GLYBURIDE
     Route: 065
  22. ZOCOR [Concomitant]
     Active Substance: SIMVASTATIN
     Dosage: 80 MG TAB QHS
     Route: 065
  23. ALTACE [Concomitant]
     Active Substance: RAMIPRIL
     Dosage: 10 MG CAP QD
     Route: 065

REACTIONS (2)
  - Pancreatic carcinoma metastatic [Fatal]
  - Goitre [Unknown]

NARRATIVE: CASE EVENT DATE: 20100105
